FAERS Safety Report 15598678 (Version 5)
Quarter: 2018Q4

REPORT INFORMATION
  Report Type: Spontaneous
  Country: DE (occurrence: DE)
  Receive Date: 20181108
  Receipt Date: 20181225
  Transmission Date: 20190205
  Serious: Yes (Other)
  Sender: FDA-Public Use
  Company Number: PHHY2018DE149119

PATIENT
  Age: 81 Year
  Sex: Male

DRUGS (21)
  1. VALSARTAN. [Suspect]
     Active Substance: VALSARTAN
     Indication: PRODUCT USED FOR UNKNOWN INDICATION
     Dosage: 160 MG, QD
     Route: 065
     Dates: start: 2014
  2. ALLOPURINOL. [Suspect]
     Active Substance: ALLOPURINOL
     Dosage: 100 MG, QD (IN THE MORNING)
     Route: 065
     Dates: start: 2018
  3. LANTUS [Suspect]
     Active Substance: INSULIN GLARGINE
     Dosage: 24 IU, QD (NIGHT)
     Route: 065
     Dates: start: 2018
  4. ENALAPRIL [Concomitant]
     Active Substance: ENALAPRIL
     Indication: PRODUCT USED FOR UNKNOWN INDICATION
     Dosage: UNK
     Route: 065
  5. SIMVASTATIN. [Suspect]
     Active Substance: SIMVASTATIN
     Indication: PRODUCT USED FOR UNKNOWN INDICATION
     Dosage: 40 MG, QD (IN THE EVENING)
     Route: 065
     Dates: start: 2014
  6. LANTUS [Suspect]
     Active Substance: INSULIN GLARGINE
     Indication: PRODUCT USED FOR UNKNOWN INDICATION
     Dosage: 20 IU, QD
     Route: 065
     Dates: start: 2014
  7. CALCITRIOL. [Concomitant]
     Active Substance: CALCITRIOL
     Indication: PRODUCT USED FOR UNKNOWN INDICATION
     Dosage: 0.25 MG, QD
     Route: 065
     Dates: start: 2014
  8. TAMSULOSIN [Suspect]
     Active Substance: TAMSULOSIN
     Indication: PRODUCT USED FOR UNKNOWN INDICATION
     Dosage: 0.4 MG, QD
     Route: 065
     Dates: start: 2014
  9. ALLOPURINOL. [Suspect]
     Active Substance: ALLOPURINOL
     Indication: HYPERURICAEMIA
     Dosage: 300 MG, QD (IN THE MORNING)
     Route: 065
     Dates: start: 2014
  10. VALSACOR [Suspect]
     Active Substance: VALSARTAN
     Indication: PRODUCT USED FOR UNKNOWN INDICATION
     Dosage: UNK
     Route: 065
  11. NOVORAPID [Suspect]
     Active Substance: INSULIN ASPART
     Dosage: IN THE MORNING: 24, NOON: 18, IN THE EVENING: 20
     Route: 065
  12. NOVAMINSULFON [Suspect]
     Active Substance: METAMIZOLE
     Indication: PRODUCT USED FOR UNKNOWN INDICATION
     Dosage: BEI BEDARF 2-3X TAGLICH 20-30 TROPFEN
     Route: 065
  13. PANTOPRAZOLE [Suspect]
     Active Substance: PANTOPRAZOLE
     Indication: PROPHYLAXIS AGAINST GASTROINTESTINAL ULCER
     Dosage: 40 MG, QD
     Route: 065
  14. ASPIRIN. [Suspect]
     Active Substance: ASPIRIN
     Indication: PRODUCT USED FOR UNKNOWN INDICATION
     Dosage: 100 MG, QD
     Route: 065
     Dates: start: 2014
  15. NOVORAPID [Suspect]
     Active Substance: INSULIN ASPART
     Indication: PRODUCT USED FOR UNKNOWN INDICATION
     Dosage: IN THE MORNING, AT NOON AND IN THE EVENING BETWEEN 8 AND 40 IU BEFORE THE MEAL
     Route: 065
  16. VALSARTAN. [Suspect]
     Active Substance: VALSARTAN
     Dosage: UNK
     Route: 065
     Dates: start: 20180903, end: 20181009
  17. TORASEMIDE [Suspect]
     Active Substance: TORSEMIDE
     Dosage: 20 MG, BID (20 MG IN THE MORNING AND 20 MG IN THE EVENING)
     Route: 065
     Dates: start: 2014
  18. CANDESARTAN ZENTIVA [Concomitant]
     Indication: PRODUCT USED FOR UNKNOWN INDICATION
     Dosage: UNK
     Route: 065
  19. TORASEMIDE [Suspect]
     Active Substance: TORSEMIDE
     Indication: PRODUCT USED FOR UNKNOWN INDICATION
     Dosage: 20 MG, QD
     Route: 065
     Dates: start: 2012
  20. AMLODIPINE [Suspect]
     Active Substance: AMLODIPINE BESYLATE
     Indication: PRODUCT USED FOR UNKNOWN INDICATION
     Dosage: 5 MG, Q12H
     Route: 065
  21. AMLODIPINE [Suspect]
     Active Substance: AMLODIPINE BESYLATE
     Dosage: 5 MG, QD (IN THE EVENING)
     Route: 065
     Dates: start: 2018

REACTIONS (14)
  - Morning sickness [Unknown]
  - Spinal pain [Unknown]
  - Muscle spasms [Unknown]
  - Injection site swelling [Unknown]
  - Myalgia [Unknown]
  - Dyspnoea [Unknown]
  - Chest discomfort [Unknown]
  - Rectal tenesmus [Unknown]
  - Blood glucose increased [Unknown]
  - Asthenia [Unknown]
  - Peripheral swelling [Unknown]
  - Skin haemorrhage [Unknown]
  - Dyspnoea exertional [Unknown]
  - Pelvic pain [Unknown]

NARRATIVE: CASE EVENT DATE: 201809
